FAERS Safety Report 9780710 (Version 1)
Quarter: 2013Q4

REPORT INFORMATION
  Report Type: Spontaneous
  Country: SA (occurrence: SA)
  Receive Date: 20131224
  Receipt Date: 20131224
  Transmission Date: 20140711
  Serious: Yes (Other)
  Sender: FDA-Public Use
  Company Number: PHHY2013SA150480

PATIENT
  Age: 62 Year
  Sex: Male
  Weight: 90 kg

DRUGS (9)
  1. EXFORGE [Suspect]
     Indication: ESSENTIAL HYPERTENSION
     Dosage: 1 DF, QD (160 MG VALS, 10 MG AMLO)
     Route: 048
     Dates: start: 201209, end: 201306
  2. DIOVAN [Suspect]
     Indication: ESSENTIAL HYPERTENSION
     Dosage: 160 MG, QD
     Route: 048
     Dates: start: 201209, end: 201308
  3. DIOVAN [Suspect]
     Dosage: 160 UNK, UNK
     Route: 048
     Dates: start: 201311
  4. EXFORGE HCT [Suspect]
     Indication: ESSENTIAL HYPERTENSION
     Dosage: 1 DF, QD (160 MG VALS, 5 MG AMLO, 12.5 MG HYDR)
     Route: 048
     Dates: start: 201308, end: 201311
  5. NOVORAPID [Concomitant]
     Indication: DIABETES MELLITUS
     Dosage: UNK UKN, UNK
  6. GALVUS MET [Concomitant]
     Indication: DIABETES MELLITUS
     Dosage: UNK UKN, UNK
  7. SIMVAHEXAL [Concomitant]
     Indication: DIABETES MELLITUS
     Dosage: UNK UKN, UNK
  8. LANTUS [Concomitant]
     Dosage: UNK UKN, UNK
  9. ASPIRIN [Concomitant]
     Indication: DIABETES MELLITUS
     Dosage: UNK UKN, UNK

REACTIONS (2)
  - Microalbuminuria [Not Recovered/Not Resolved]
  - Glycosylated haemoglobin increased [Unknown]
